FAERS Safety Report 4856230-8 (Version None)
Quarter: 2005Q4

REPORT INFORMATION
  Report Type: 
  Country: None (occurrence: None)
  Receive Date: 20051219
  Receipt Date: 20051215
  Transmission Date: 20060501
  Serious: Yes (Disabling)
  Sender: FDA-Public Use
  Company Number: SE-RB-2459-2005

PATIENT
  Age: 1 Day
  Sex: Male
  Weight: 4 kg

DRUGS (1)
  1. BUPRENORPHINE HCL [Suspect]
     Route: 064

REACTIONS (2)
  - RESTLESSNESS [None]
  - SPEECH DISORDER DEVELOPMENTAL [None]
